FAERS Safety Report 14718538 (Version 1)
Quarter: 2018Q2

REPORT INFORMATION
  Report Type: Spontaneous
  Country: US (occurrence: US)
  Receive Date: 20180404
  Receipt Date: 20180404
  Transmission Date: 20180711
  Serious: Yes (Other)
  Sender: FDA-Public Use
  Company Number: US-BEH-2018089310

PATIENT
  Sex: Female
  Weight: 65.76 kg

DRUGS (18)
  1. LIDOCAINE. [Concomitant]
     Active Substance: LIDOCAINE
  2. TIZANIDINE. [Concomitant]
     Active Substance: TIZANIDINE
  3. ACETAMINOPHEN. [Concomitant]
     Active Substance: ACETAMINOPHEN
  4. LUTEIN                             /01638501/ [Concomitant]
     Active Substance: LUTEIN
  5. PROTONIX [Concomitant]
     Active Substance: PANTOPRAZOLE SODIUM
  6. DIPHENHYDRAMINE. [Concomitant]
     Active Substance: DIPHENHYDRAMINE
  7. FLAXSEED [Concomitant]
     Active Substance: FLAX SEED
  8. WELLBUTRIN [Concomitant]
     Active Substance: BUPROPION HYDROCHLORIDE
  9. EPINEPHRINE. [Concomitant]
     Active Substance: EPINEPHRINE
  10. HIZENTRA [Suspect]
     Active Substance: HUMAN IMMUNOGLOBULIN G
     Indication: HYPOGAMMAGLOBULINAEMIA
     Dosage: 10 G, EVERY WEEK
     Route: 058
     Dates: start: 20170829
  11. CARBAMAZEPINE. [Concomitant]
     Active Substance: CARBAMAZEPINE
  12. B COMPLEX                          /00212701/ [Concomitant]
     Active Substance: NIACINAMIDE\PYRIDOXINE\RIBOFLAVIN\THIAMINE
  13. FISH OIL [Concomitant]
     Active Substance: FISH OIL
  14. LISINOPRIL. [Concomitant]
     Active Substance: LISINOPRIL
  15. HIZENTRA [Suspect]
     Active Substance: HUMAN IMMUNOGLOBULIN G
     Dosage: UNK
     Route: 058
  16. SUMATRIPTAN. [Concomitant]
     Active Substance: SUMATRIPTAN
  17. VITAMIN D3 [Concomitant]
     Active Substance: CHOLECALCIFEROL
  18. VITAMIN E                          /00110501/ [Concomitant]
     Active Substance: TOCOPHEROL

REACTIONS (1)
  - Surgery [Unknown]
